FAERS Safety Report 12982835 (Version 2)
Quarter: 2016Q4

REPORT INFORMATION
  Report Type: Spontaneous
  Country: FR (occurrence: FR)
  Receive Date: 20161129
  Receipt Date: 20161201
  Transmission Date: 20170207
  Serious: Yes (Hospitalization)
  Sender: FDA-Public Use
  Company Number: FR-PFIZER INC-2016550244

PATIENT
  Age: 87 Year
  Sex: Female

DRUGS (7)
  1. AMOXICILLIN. [Suspect]
     Active Substance: AMOXICILLIN
     Dosage: UNK
     Route: 065
     Dates: start: 20160326, end: 20160402
  2. HEMIGOXINE NATIVELLE [Suspect]
     Active Substance: DIGOXIN
     Dosage: 1 DF, DAILY
     Route: 065
     Dates: end: 20160407
  3. LASILIX /00032601/ [Suspect]
     Active Substance: FUROSEMIDE
     Dosage: UNK
     Route: 065
  4. TENORMIN [Suspect]
     Active Substance: ATENOLOL
     Dosage: 50 MG, DAILY
     Route: 048
     Dates: end: 20160407
  5. LASILIX /00032601/ [Suspect]
     Active Substance: FUROSEMIDE
     Dosage: 40 MG, DAILY
     Route: 065
     Dates: end: 20160407
  6. INNOHEP [Concomitant]
     Active Substance: TINZAPARIN SODIUM
     Dosage: 4000 IU, DAILY
  7. FLUDEX-SR [Concomitant]
     Active Substance: INDAPAMIDE
     Dosage: 5 MG, DAILY

REACTIONS (9)
  - Toxic skin eruption [Unknown]
  - Pyrexia [Recovered/Resolved]
  - Loss of consciousness [Recovered/Resolved]
  - Prerenal failure [Recovered/Resolved]
  - Bradycardia [Recovered/Resolved]
  - Hyperkalaemia [Recovered/Resolved]
  - Eosinophilia [Recovered/Resolved]
  - Tooth infection [Unknown]
  - Malaise [Recovered/Resolved]

NARRATIVE: CASE EVENT DATE: 201603
